FAERS Safety Report 8698955 (Version 2)
Quarter: 2012Q4

REPORT INFORMATION
  Report Type: 
  Country: CA (occurrence: CA)
  Receive Date: 20120802
  Receipt Date: 20121121
  Transmission Date: 20130627
  Serious: Yes (Other)
  Sender: FDA-Public Use
  Company Number: CA-ELI_LILLY_AND_COMPANY-CA201207006318

PATIENT
  Sex: Female

DRUGS (4)
  1. CYMBALTA [Suspect]
     Dosage: 60 mg, unknown
     Dates: start: 201204
  2. CYMBALTA [Suspect]
     Dosage: 30 mg, qod
  3. CYMBALTA [Suspect]
     Dosage: 60 mg, qod
  4. THYROID THERAPY [Concomitant]

REACTIONS (7)
  - Skin exfoliation [Recovered/Resolved]
  - Musculoskeletal stiffness [Unknown]
  - Flatulence [Unknown]
  - Blood sodium decreased [Unknown]
  - Hyperhidrosis [Recovered/Resolved]
  - Neuralgia [Recovering/Resolving]
  - Arthritis [Unknown]
